FAERS Safety Report 8911158 (Version 1)
Quarter: 2012Q4

REPORT INFORMATION
  Report Type: 
  Country: US (occurrence: US)
  Receive Date: 20121116
  Receipt Date: 20121116
  Transmission Date: 20130627
  Serious: Yes (Hospitalization)
  Sender: FDA-Public Use
  Company Number: US-GLAXOSMITHKLINE-A0988364A

PATIENT
  Age: 65 Year
  Sex: Male
  Weight: 88.6 kg

DRUGS (6)
  1. VOTRIENT [Suspect]
     Indication: PRODUCT USED FOR UNKNOWN INDICATION
     Dosage: 800MG Per day
     Route: 048
     Dates: start: 20120705
  2. ATENOLOL [Concomitant]
     Dosage: 25MG Unknown
     Route: 048
  3. CELEXA [Concomitant]
     Dosage: 10MG Unknown
     Route: 048
  4. IMODIUM AD [Concomitant]
     Dosage: 2MG Unknown
     Route: 048
  5. APAP [Concomitant]
     Dosage: 500MG Unknown
     Route: 048
  6. PROCHLORPERAZINE [Concomitant]
     Route: 048

REACTIONS (8)
  - Myocardial infarction [Unknown]
  - Fatigue [Unknown]
  - Diarrhoea [Unknown]
  - Nausea [Unknown]
  - Vomiting [Unknown]
  - Headache [Unknown]
  - Somnolence [Unknown]
  - Dysgeusia [Unknown]
